FAERS Safety Report 8160561 (Version 3)
Quarter: 2016Q2

REPORT INFORMATION
  Report Type: Report from Study
  Country: PT (occurrence: PT)
  Receive Date: 20110928
  Receipt Date: 20160510
  Transmission Date: 20160815
  Serious: Yes (Hospitalization)
  Sender: FDA-Public Use
  Company Number: PHHO2011PT15676

PATIENT
  Age: 67 Year
  Sex: Male
  Weight: 88.6 kg

DRUGS (10)
  1. METFORMIN [Concomitant]
     Active Substance: METFORMIN HYDROCHLORIDE
     Indication: DIABETES MELLITUS
     Dosage: 500 MG, BID
     Route: 048
  2. ALISKIREN [Suspect]
     Active Substance: ALISKIREN
     Indication: CARDIAC FAILURE
     Dosage: 300 MG, UNK
     Route: 048
     Dates: end: 20110914
  3. AMIODARONE [Concomitant]
     Active Substance: AMIODARONE
     Indication: ATRIAL FIBRILLATION
     Dosage: 200 MG, QD
     Route: 048
     Dates: start: 20090330
  4. SPIRONOLACTONE. [Suspect]
     Active Substance: SPIRONOLACTONE
     Indication: CARDIAC FAILURE
     Dosage: 12.5 MG, QD
     Route: 048
     Dates: start: 200901, end: 20110914
  5. ENALAPRIL [Suspect]
     Active Substance: ENALAPRIL
     Indication: CARDIAC FAILURE
     Dosage: RUN IN PHASE
     Route: 048
  6. FUROSEMIDE. [Concomitant]
     Active Substance: FUROSEMIDE
     Indication: CARDIAC FAILURE
     Dosage: 20 MG, QD
     Route: 048
     Dates: start: 200901
  7. ENALAPRIL [Suspect]
     Active Substance: ENALAPRIL
     Dosage: 10 MG, BID
     Route: 048
     Dates: end: 20110914
  8. CARVEDILOL. [Suspect]
     Active Substance: CARVEDILOL
     Indication: CARDIAC FAILURE
     Dosage: 12.5 MG, BID
     Route: 048
     Dates: start: 200812, end: 20110914
  9. DIGOXIN. [Concomitant]
     Active Substance: DIGOXIN
     Indication: ATRIAL FIBRILLATION
     Dosage: 0.125 MG, 5/WEEK
     Route: 048
     Dates: start: 200901, end: 20110914
  10. SIMVASTATIN. [Concomitant]
     Active Substance: SIMVASTATIN
     Indication: DYSLIPIDAEMIA
     Dosage: 40 MG, QD
     Route: 048
     Dates: start: 200812

REACTIONS (3)
  - Chronic kidney disease [Unknown]
  - Hypotension [Unknown]
  - Pneumonia [Unknown]

NARRATIVE: CASE EVENT DATE: 20110910
